FAERS Safety Report 7224922 (Version 2)
Quarter: 2012Q4

REPORT INFORMATION
  Report Type: 
  Country: US (occurrence: US)
  Receive Date: 20091221
  Receipt Date: 20120910
  Transmission Date: 20130627
  Serious: No
  Sender: FDA-Public Use
  Company Number: US-ASTRAZENECA-2009SE06906

PATIENT
  Age: 68 Year
  Sex: Female
  Weight: 59.9 kg

DRUGS (6)
  1. CRESTOR [Suspect]
     Indication: BLOOD CHOLESTEROL INCREASED
     Route: 048
  2. SYNTHROID [Concomitant]
  3. FLAX SEED OIL [Concomitant]
  4. FISH OIL [Concomitant]
  5. CALCIUM [Concomitant]
  6. TYLENOL PM [Concomitant]

REACTIONS (4)
  - Blood calcium decreased [Not Recovered/Not Resolved]
  - Amnesia [Unknown]
  - Blood cholesterol increased [Unknown]
  - Drug dose omission [Unknown]
